FAERS Safety Report 5944191-X (Version None)
Quarter: 2008Q4

REPORT INFORMATION
  Report Type: 
  Country: None (occurrence: None)
  Receive Date: 20081104
  Receipt Date: 20081024
  Transmission Date: 20090506
  Serious: Yes (Other)
  Sender: FDA-Public Use
  Company Number: 2008AP002877

PATIENT
  Age: 48 Year
  Sex: Female

DRUGS (2)
  1. MIDODRINE HYDROCHLORIDE [Suspect]
     Indication: BLOOD PRESSURE SYSTOLIC ABNORMAL
     Dosage: 5 MG; QD; 5 MG
  2. MIDODRINE HYDROCHLORIDE [Suspect]
     Indication: HYPOTENSION
     Dosage: 5 MG; QD; 5 MG

REACTIONS (10)
  - ARTERIAL OCCLUSIVE DISEASE [None]
  - DRY GANGRENE [None]
  - INFECTION [None]
  - ISCHAEMIA [None]
  - LEG AMPUTATION [None]
  - NECROSIS [None]
  - SKIN ULCER [None]
  - SLEEP DISORDER [None]
  - TOE AMPUTATION [None]
  - VASCULAR CALCIFICATION [None]
